FAERS Safety Report 25114361 (Version 1)
Quarter: 2025Q1

REPORT INFORMATION
  Report Type: Spontaneous
  Country: US (occurrence: None)
  Receive Date: 20250321
  Receipt Date: 20250321
  Transmission Date: 20250409
  Serious: Yes (Life-Threatening, Other)
  Sender: FDA-CTU
  Company Number: None

PATIENT
  Age: 69 Year
  Sex: Female
  Weight: 79.38 kg

DRUGS (5)
  1. ORPHENADRINE [Suspect]
     Active Substance: ORPHENADRINE
  2. FONDAPARINUX SODIUM [Suspect]
     Active Substance: FONDAPARINUX SODIUM
  3. ZYRTEC [Concomitant]
     Active Substance: CETIRIZINE HYDROCHLORIDE
  4. BENADRYL FREE [Concomitant]
  5. ASPIRIN [Concomitant]
     Active Substance: ASPIRIN

REACTIONS (4)
  - Thrombosis [None]
  - Chest pain [None]
  - Palpitations [None]
  - Rubber sensitivity [None]

NARRATIVE: CASE EVENT DATE: 20250316
